FAERS Safety Report 9414501 (Version 1)
Quarter: 2013Q3

REPORT INFORMATION
  Report Type: Spontaneous
  Country: HR (occurrence: HR)
  Receive Date: 20130723
  Receipt Date: 20130723
  Transmission Date: 20140515
  Serious: Yes (Hospitalization)
  Sender: FDA-Public Use
  Company Number: HR-GLAXOSMITHKLINE-B0909793A

PATIENT
  Age: 43 Year
  Sex: Female

DRUGS (4)
  1. LAMICTAL [Suspect]
     Indication: EPILEPSY
     Route: 048
     Dates: start: 20130607, end: 20130621
  2. ALOPURINOL [Concomitant]
  3. CONTROLOC [Concomitant]
  4. NORMABEL [Concomitant]

REACTIONS (8)
  - Face oedema [Unknown]
  - Localised oedema [Unknown]
  - Palatal oedema [Unknown]
  - Periorbital oedema [Unknown]
  - Body temperature increased [Unknown]
  - Aphthous stomatitis [Unknown]
  - White blood cell count increased [Unknown]
  - C-reactive protein increased [Unknown]
